FAERS Safety Report 8869776 (Version 1)
Quarter: 2012Q4

REPORT INFORMATION
  Report Type: 
  Country: BR (occurrence: BR)
  Receive Date: 20121028
  Receipt Date: 20121028
  Transmission Date: 20130627
  Serious: Yes (Other)
  Sender: FDA-Public Use
  Company Number: BR-JNJFOC-20121009822

PATIENT
  Age: 59 Year
  Sex: Female
  Weight: 66.85 kg

DRUGS (7)
  1. REMICADE [Suspect]
     Indication: RHEUMATOID ARTHRITIS
     Dosage: 3 mg/kg
     Route: 042
     Dates: start: 20110929
  2. REMICADE [Suspect]
     Indication: RHEUMATOID ARTHRITIS
     Route: 042
     Dates: start: 20120106, end: 20120106
  3. REMICADE [Suspect]
     Indication: RHEUMATOID ARTHRITIS
     Route: 042
     Dates: start: 201111
  4. PREDNISONE [Concomitant]
     Route: 065
  5. METHOTREXATE [Concomitant]
     Route: 065
  6. MELOXICAM [Concomitant]
     Route: 065
  7. METRONIDAZOLE [Concomitant]
     Route: 048

REACTIONS (5)
  - Pruritus generalised [Recovered/Resolved]
  - Rash [Recovered/Resolved]
  - Conjunctivitis [Unknown]
  - Infusion related reaction [Recovered/Resolved]
  - Rheumatoid arthritis [Unknown]
